FAERS Safety Report 6773538-X (Version None)
Quarter: 2010Q2

REPORT INFORMATION
  Report Type: 
  Country: None (occurrence: None)
  Receive Date: 20100611
  Receipt Date: 20100528
  Transmission Date: 20101027
  Serious: Yes (Hospitalization)
  Sender: FDA-Public Use
  Company Number: AMAG201000238

PATIENT
  Age: 77 Year
  Sex: Female
  Weight: 45.5 kg

DRUGS (10)
  1. FERAHEME [Suspect]
     Indication: ANAEMIA
     Dosage: 510 MG, SINGLE; 5 ML,(150 MG) SINGLE, INTRAVENOUS
     Route: 042
     Dates: start: 20100428, end: 20100428
  2. FERAHEME [Suspect]
     Indication: ANAEMIA
     Dosage: 510 MG, SINGLE; 5 ML,(150 MG) SINGLE, INTRAVENOUS
     Route: 042
     Dates: start: 20100511, end: 20100511
  3. ALBUTEROL (SALBUTAMOL SULFATE) [Concomitant]
  4. ATROVENT [Concomitant]
  5. COREG [Concomitant]
  6. IRON (IRON) [Concomitant]
  7. HUMULIN (INSULIN HUMAN) [Concomitant]
  8. PROVIGIL [Concomitant]
  9. PROTONIX [Concomitant]
  10. NORVASC [Concomitant]

REACTIONS (22)
  - ACUTE PULMONARY OEDEMA [None]
  - ACUTE RESPIRATORY FAILURE [None]
  - ASTHENIA [None]
  - BRAIN NATRIURETIC PEPTIDE INCREASED [None]
  - CARDIAC FAILURE CONGESTIVE [None]
  - CONFUSIONAL STATE [None]
  - DECREASED APPETITE [None]
  - DYSPNOEA [None]
  - EYE ROLLING [None]
  - FLUSHING [None]
  - HYPERGLYCAEMIA [None]
  - HYPOTENSION [None]
  - MALAISE [None]
  - OXYGEN SATURATION DECREASED [None]
  - PULMONARY OEDEMA [None]
  - PURPURA [None]
  - RESPIRATORY DISORDER [None]
  - TACHYCARDIA [None]
  - THROMBOCYTOPENIA [None]
  - TRANSFUSION REACTION [None]
  - UNRESPONSIVE TO STIMULI [None]
  - URINARY TRACT INFECTION [None]
